FAERS Safety Report 16727018 (Version 2)
Quarter: 2019Q3

REPORT INFORMATION
  Report Type: Report from Study
  Country: None (occurrence: US)
  Receive Date: 20190821
  Receipt Date: 20190828
  Transmission Date: 20191005
  Serious: Yes (Other)
  Sender: FDA-Public Use
  Company Number: US-ABBVIE-19K-163-2839351-00

PATIENT
  Age: 61 Year
  Sex: Male
  Weight: 87.62 kg

DRUGS (1)
  1. HUMIRA [Suspect]
     Active Substance: ADALIMUMAB
     Indication: PSORIASIS
     Route: 058

REACTIONS (6)
  - Eye operation [Recovering/Resolving]
  - Atrial fibrillation [Not Recovered/Not Resolved]
  - Haemorrhage [Unknown]
  - Eye haemorrhage [Unknown]
  - Visual impairment [Recovered/Resolved]
  - Injection site bruising [Recovering/Resolving]

NARRATIVE: CASE EVENT DATE: 20190626
